FAERS Safety Report 16449126 (Version 1)
Quarter: 2019Q2

REPORT INFORMATION
  Report Type: Spontaneous
  Country: CN (occurrence: CN)
  Receive Date: 20190619
  Receipt Date: 20190619
  Transmission Date: 20190711
  Serious: Yes (Life-Threatening, Hospitalization)
  Sender: FDA-Public Use
  Company Number: CN-GLAXOSMITHKLINE-CN2019APC108824

PATIENT

DRUGS (2)
  1. LAMICTAL [Suspect]
     Active Substance: LAMOTRIGINE
     Indication: EPILEPSY
     Dosage: UNK UNK, BID (HALF TABLET)
     Route: 048
     Dates: start: 20190409
  2. COMPOUND SODIUM VALPROATE AND VALPROIC ACID SR TABLET [Concomitant]
     Indication: EPILEPSY
     Dosage: UNK

REACTIONS (15)
  - Globulins decreased [Not Recovered/Not Resolved]
  - Weight decreased [Not Recovered/Not Resolved]
  - Blood albumin decreased [Not Recovered/Not Resolved]
  - Condition aggravated [Not Recovered/Not Resolved]
  - Eating disorder [Unknown]
  - Blister [Unknown]
  - Decreased appetite [Not Recovered/Not Resolved]
  - Haemoglobin decreased [Not Recovered/Not Resolved]
  - Mouth ulceration [Not Recovered/Not Resolved]
  - Rash [Not Recovered/Not Resolved]
  - Skin lesion [Unknown]
  - Skin ulcer [Unknown]
  - Cranial operation [Recovered/Resolved]
  - Anaemia [Not Recovered/Not Resolved]
  - Movement disorder [Unknown]
